FAERS Safety Report 17979750 (Version 2)
Quarter: 2020Q3

REPORT INFORMATION
  Report Type: Spontaneous
  Country: US (occurrence: US)
  Receive Date: 20200703
  Receipt Date: 20200814
  Transmission Date: 20201103
  Serious: Yes (Death)
  Sender: FDA-Public Use
  Company Number: US-PURDUE PHARMA-USA-2020-0154894

PATIENT
  Sex: Male

DRUGS (2)
  1. OXYCONTIN [Suspect]
     Active Substance: OXYCODONE HYDROCHLORIDE
     Indication: BACK PAIN
     Dosage: 300 UNIT, MONTHLY
     Route: 048
     Dates: start: 200401, end: 2015
  2. DILAUDID [Suspect]
     Active Substance: HYDROMORPHONE HYDROCHLORIDE
     Indication: PRODUCT USED FOR UNKNOWN INDICATION
     Dosage: UNK
     Route: 065

REACTIONS (10)
  - Anxiety [Unknown]
  - Dry mouth [Unknown]
  - Disturbance in attention [Unknown]
  - Drug dependence [Fatal]
  - Therapeutic product ineffective [Unknown]
  - Pain [Unknown]
  - Denture wearer [Unknown]
  - Tooth disorder [Unknown]
  - Depression [Unknown]
  - Road traffic accident [Fatal]
